FAERS Safety Report 20473084 (Version 2)
Quarter: 2022Q3

REPORT INFORMATION
  Report Type: Spontaneous
  Country: US (occurrence: US)
  Receive Date: 20220215
  Receipt Date: 20220901
  Transmission Date: 20221027
  Serious: No
  Sender: FDA-Public Use
  Company Number: US-ELI_LILLY_AND_COMPANY-US202202003124

PATIENT
  Sex: Female

DRUGS (7)
  1. TRULICITY [Suspect]
     Active Substance: DULAGLUTIDE
     Indication: Product used for unknown indication
     Dosage: 0.75 MG, UNKNOWN
     Route: 058
     Dates: start: 2022
  2. TRULICITY [Suspect]
     Active Substance: DULAGLUTIDE
     Dosage: 1.5 MG, UNKNOWN
     Route: 058
  3. TRULICITY [Suspect]
     Active Substance: DULAGLUTIDE
     Dosage: 3 MG, UNKNOWN
     Route: 058
  4. TRULICITY [Suspect]
     Active Substance: DULAGLUTIDE
     Dosage: 4.5 MG, UNKNOWN
     Route: 058
  5. BASAGLAR [Concomitant]
     Active Substance: INSULIN GLARGINE
     Indication: Product used for unknown indication
     Dosage: UNK (10 UNITS)
  6. NOVOLOG [Concomitant]
     Active Substance: INSULIN ASPART
     Indication: Product used for unknown indication
     Dosage: 4 UNITS
  7. METFORMIN [Concomitant]
     Active Substance: METFORMIN HYDROCHLORIDE
     Indication: Diabetes mellitus
     Dosage: UNK UNK, BID
     Dates: start: 2006

REACTIONS (8)
  - Glycosylated haemoglobin increased [Not Recovered/Not Resolved]
  - Vomiting [Unknown]
  - Blood glucose decreased [Unknown]
  - Decreased appetite [Unknown]
  - Diarrhoea [Unknown]
  - Glycosylated haemoglobin increased [Unknown]
  - Vomiting [Unknown]
  - Feeding disorder [Unknown]
